FAERS Safety Report 6780076-7 (Version None)
Quarter: 2010Q2

REPORT INFORMATION
  Report Type: 
  Country: None (occurrence: None)
  Receive Date: 20100618
  Receipt Date: 20100604
  Transmission Date: 20101027
  Serious: No
  Sender: FDA-Public Use
  Company Number: US-TEVA-237828USA

PATIENT
  Age: 88 Year
  Sex: Female

DRUGS (1)
  1. SALBUTAMOL SULFATE INHALATION, 0.09 MG [Suspect]
     Indication: CHRONIC OBSTRUCTIVE PULMONARY DISEASE
     Route: 055

REACTIONS (1)
  - ACCIDENTAL EXPOSURE [None]
